FAERS Safety Report 10907800 (Version 1)
Quarter: 2015Q1

REPORT INFORMATION
  Report Type: Spontaneous
  Country: FR (occurrence: None)
  Receive Date: 20150309
  Receipt Date: 20150309
  Transmission Date: 20150721
  Serious: Yes (Hospitalization)
  Sender: FDA-Public Use
  Company Number: CLINIGEN-003465

PATIENT
  Age: 63 Year
  Sex: Male

DRUGS (17)
  1. CERTICAN [Suspect]
     Active Substance: EVEROLIMUS
     Indication: ORGAN TRANSPLANT
     Route: 048
  2. INEXIUM [Concomitant]
     Active Substance: ESOMEPRAZOLE
  3. DEXAFREE [Concomitant]
     Active Substance: DEXAMETHASONE SODIUM PHOSPHATE
  4. DIFFU K [Concomitant]
     Active Substance: POTASSIUM CHLORIDE
  5. FOSCAVIR [Suspect]
     Active Substance: FOSCARNET SODIUM
     Indication: CYTOMEGALOVIRUS INFECTION
     Route: 042
     Dates: start: 20130616, end: 20130622
  6. CACIT D3 [Concomitant]
     Active Substance: CALCIUM\CHOLECALCIFEROL
  7. FOSAMAX [Concomitant]
     Active Substance: ALENDRONATE SODIUM
  8. IMOVANE [Concomitant]
     Active Substance: ZOPICLONE
  9. NEUPOGEN [Concomitant]
     Active Substance: FILGRASTIM
  10. ATROVENT [Concomitant]
     Active Substance: IPRATROPIUM BROMIDE
  11. SOLUPRED [Concomitant]
     Active Substance: PREDNISOLONE
  12. IMODIUM [Concomitant]
     Active Substance: LOPERAMIDE HYDROCHLORIDE
  13. PERFALGAN [Concomitant]
     Active Substance: ACETAMINOPHEN
  14. PRIMPERAN [Concomitant]
     Active Substance: METOCLOPRAMIDE HYDROCHLORIDE
  15. TAVANIC [Concomitant]
     Active Substance: LEVOFLOXACIN
  16. PROGRAF [Suspect]
     Active Substance: TACROLIMUS\TACROLIMUS ANHYDROUS
     Indication: ORGAN TRANSPLANT
     Route: 048
  17. CARDENSIEL [Concomitant]
     Active Substance: BISOPROLOL FUMARATE

REACTIONS (4)
  - Haemolytic anaemia [None]
  - Thrombotic microangiopathy [None]
  - Blood creatinine increased [None]
  - Condition aggravated [None]

NARRATIVE: CASE EVENT DATE: 20130619
